FAERS Safety Report 13384965 (Version 1)
Quarter: 2017Q1

REPORT INFORMATION
  Report Type: Spontaneous
  Country: US (occurrence: US)
  Receive Date: 20170329
  Receipt Date: 20170329
  Transmission Date: 20170429
  Serious: No
  Sender: FDA-Public Use
  Company Number: US-BIOGEN-2017BI00376730

PATIENT
  Sex: Female

DRUGS (1)
  1. AVONEX [Suspect]
     Active Substance: INTERFERON BETA-1A
     Indication: MULTIPLE SCLEROSIS
     Route: 030
     Dates: start: 2015

REACTIONS (5)
  - Seasonal allergy [Not Recovered/Not Resolved]
  - Nasopharyngitis [Not Recovered/Not Resolved]
  - Bronchitis [Not Recovered/Not Resolved]
  - Sinus disorder [Not Recovered/Not Resolved]
  - Influenza like illness [Recovered/Resolved]
